FAERS Safety Report 8965247 (Version 2)
Quarter: 2013Q1

REPORT INFORMATION
  Report Type: Spontaneous
  Country: JP (occurrence: JP)
  Receive Date: 20121213
  Receipt Date: 20130221
  Transmission Date: 20140127
  Serious: Yes (Death, Hospitalization, Other)
  Sender: FDA-Public Use
  Company Number: JP-ROCHE-1164613

PATIENT
  Age: 64 Year
  Sex: Female
  Weight: 44 kg

DRUGS (3)
  1. ACTEMRA [Suspect]
     Indication: RHEUMATOID ARTHRITIS
     Route: 041
     Dates: start: 20111101, end: 20111129
  2. CELECOX [Suspect]
     Indication: PRODUCT USED FOR UNKNOWN INDICATION
     Route: 048
     Dates: start: 20111102, end: 20111129
  3. GASTER D [Suspect]
     Indication: PRODUCT USED FOR UNKNOWN INDICATION
     Route: 048

REACTIONS (5)
  - Intestinal perforation [Unknown]
  - Peritonitis [Fatal]
  - Disseminated intravascular coagulation [Fatal]
  - Pleural effusion [Unknown]
  - Gastrointestinal necrosis [Unknown]
